FAERS Safety Report 8785453 (Version 1)
Quarter: 2012Q4

REPORT INFORMATION
  Report Type: 
  Country: DE (occurrence: DE)
  Receive Date: 20120914
  Receipt Date: 20120914
  Transmission Date: 20130627
  Serious: Yes (Life-Threatening, Hospitalization)
  Sender: FDA-Public Use
  Company Number: DE-B.I. PHARMACEUTICALS,INC./RIDGEFIELD-2012-DE-02156DE

PATIENT
  Age: 67 Year
  Sex: Male
  Weight: 96 kg

DRUGS (10)
  1. PRADAXA [Suspect]
     Indication: ATRIAL FIBRILLATION
     Dosage: 300 mg
     Dates: start: 2012
  2. ASS [Concomitant]
  3. CLOPIDOGREL [Concomitant]
  4. SIMVASTATIN [Concomitant]
  5. OLMESARTAN [Concomitant]
  6. METOPROLOL [Concomitant]
  7. AMLODIPIN [Concomitant]
  8. HCT [Concomitant]
  9. NOVOPULMON [Concomitant]
  10. FORMATRIS [Concomitant]

REACTIONS (1)
  - Myocardial infarction [Not Recovered/Not Resolved]
